FAERS Safety Report 9951542 (Version 2)
Quarter: 2014Q1

REPORT INFORMATION
  Report Type: Report from Study
  Country: US (occurrence: US)
  Receive Date: 20140304
  Receipt Date: 20140304
  Transmission Date: 20141002
  Serious: No
  Sender: FDA-Public Use
  Company Number: US-ABBVIE-12P-163-1017772-00

PATIENT
  Age: 58 Year
  Sex: Female

DRUGS (14)
  1. HUMIRA [Suspect]
     Indication: RHEUMATOID ARTHRITIS
     Route: 058
  2. ADVAIR [Concomitant]
     Indication: ASTHMA
     Dosage: DISKS DAILY
  3. VENTOLIN HFA [Concomitant]
     Indication: ASTHMA
     Dosage: INHALANT AS NEEDED
  4. BONVIVA [Concomitant]
     Indication: OSTEOPENIA
     Dosage: MONTHLY
     Route: 048
  5. BONVIVA [Concomitant]
     Indication: OSTEOPOROSIS
  6. TOPAMAX [Concomitant]
     Indication: HEADACHE
     Dosage: 25MG DAILY
     Route: 048
  7. TOPAMAX [Concomitant]
     Dosage: 50 MG DAILY
  8. WELLBUTRIN [Concomitant]
     Indication: DEPRESSION
     Dosage: 75MG DAILY
     Route: 048
  9. XANAX [Concomitant]
     Indication: ANXIETY
  10. TIZANIDINE [Concomitant]
     Indication: MUSCLE RELAXANT THERAPY
     Route: 048
  11. VICODIN [Concomitant]
     Indication: PAIN
     Dosage: 5/325MG AS NEEDED
     Route: 048
  12. FOLIC ACID [Concomitant]
     Indication: RHEUMATOID ARTHRITIS
     Dosage: 1MG DAILY
     Route: 048
  13. MELOXICAM [Concomitant]
     Indication: PAIN
     Route: 048
  14. RESTASIS [Concomitant]
     Dosage: 1 DROP EACH EYE TWICE DAILY

REACTIONS (14)
  - Eye irritation [Not Recovered/Not Resolved]
  - Respiratory tract congestion [Not Recovered/Not Resolved]
  - Influenza [Not Recovered/Not Resolved]
  - Nasopharyngitis [Not Recovered/Not Resolved]
  - Productive cough [Not Recovered/Not Resolved]
  - Pain [Not Recovered/Not Resolved]
  - Rash [Not Recovered/Not Resolved]
  - Headache [Not Recovered/Not Resolved]
  - Injection site reaction [Not Recovered/Not Resolved]
  - Injection site nodule [Not Recovered/Not Resolved]
  - Dry eye [Not Recovered/Not Resolved]
  - Drug ineffective [Not Recovered/Not Resolved]
  - Arthralgia [Not Recovered/Not Resolved]
  - Hypersensitivity [Not Recovered/Not Resolved]
